FAERS Safety Report 23894739 (Version 1)
Quarter: 2024Q2

REPORT INFORMATION
  Report Type: Spontaneous
  Country: HU (occurrence: HU)
  Receive Date: 20240524
  Receipt Date: 20240524
  Transmission Date: 20240716
  Serious: Yes (Other)
  Sender: FDA-Public Use
  Company Number: HU-EMA-DD-20240507-7482643-080227

PATIENT
  Age: 62 Year
  Sex: Male

DRUGS (8)
  1. CARBOPLATIN [Suspect]
     Active Substance: CARBOPLATIN
     Indication: Metastases to lymph nodes
     Dates: start: 2020
  2. DOCETAXEL [Suspect]
     Active Substance: DOCETAXEL\DOCETAXEL ANHYDROUS
     Indication: Metastases to lymph nodes
     Dates: start: 2020
  3. NINTEDANIB [Suspect]
     Active Substance: NINTEDANIB
     Indication: K-ras gene mutation
     Dates: start: 2021
  4. BEVACIZUMAB [Suspect]
     Active Substance: BEVACIZUMAB
     Indication: Metastases to lymph nodes
     Dates: start: 2020
  5. ATEZOLIZUMAB [Suspect]
     Active Substance: ATEZOLIZUMAB
     Indication: Metastases to lymph nodes
     Dates: start: 2020, end: 2021
  6. VINORELBINE [Concomitant]
     Active Substance: VINORELBINE TARTRATE
  7. CISPLATIN [Concomitant]
     Active Substance: CISPLATIN
  8. DOCETAXEL [Concomitant]
     Active Substance: DOCETAXEL\DOCETAXEL ANHYDROUS
     Indication: Lung adenocarcinoma
     Dates: start: 2021

REACTIONS (2)
  - Colitis [Recovering/Resolving]
  - Apoptosis [Unknown]

NARRATIVE: CASE EVENT DATE: 20210101
